FAERS Safety Report 6831573-7 (Version None)
Quarter: 2010Q3

REPORT INFORMATION
  Report Type: 
  Country: None (occurrence: None)
  Receive Date: 20100707
  Receipt Date: 20100626
  Transmission Date: 20110219
  Serious: Yes (Hospitalization)
  Sender: FDA-Public Use
  Company Number: 2010AP001334

PATIENT
  Age: 39 Year
  Sex: Female

DRUGS (3)
  1. BUPROPION HCL [Suspect]
  2. TRAMADOL HCL [Suspect]
  3. NORTRIPTYLINE HYDROCHLORIDE [Suspect]

REACTIONS (10)
  - BACK PAIN [None]
  - CONFUSIONAL STATE [None]
  - CONVULSION [None]
  - CONVULSIVE THRESHOLD LOWERED [None]
  - DRUG INTERACTION [None]
  - DRUG TOXICITY [None]
  - HEART RATE INCREASED [None]
  - METABOLIC DISORDER [None]
  - POSTICTAL STATE [None]
  - SPINAL COMPRESSION FRACTURE [None]
